FAERS Safety Report 9012616 (Version 1)
Quarter: 2013Q1

REPORT INFORMATION
  Report Type: Spontaneous
  Country: IE (occurrence: IE)
  Receive Date: 20130114
  Receipt Date: 20130114
  Transmission Date: 20140127
  Serious: No
  Sender: FDA-Public Use
  Company Number: IE-ELI_LILLY_AND_COMPANY-IE201301003752

PATIENT
  Age: 87 Year
  Sex: Male

DRUGS (3)
  1. DULOXETINE HYDROCHLORIDE [Suspect]
     Indication: DEPRESSION
     Dosage: 60 MG, QD
  2. DULOXETINE HYDROCHLORIDE [Suspect]
     Dosage: 90 MG, QD
  3. WARFARIN [Concomitant]
     Dosage: UNK

REACTIONS (2)
  - International normalised ratio increased [Recovered/Resolved]
  - Drug interaction [Recovered/Resolved]
